FAERS Safety Report 15192614 (Version 1)
Quarter: 2018Q3

REPORT INFORMATION
  Report Type: Spontaneous
  Country: CA (occurrence: CA)
  Receive Date: 20180725
  Receipt Date: 20180725
  Transmission Date: 20181010
  Serious: Yes (Hospitalization)
  Sender: FDA-Public Use
  Company Number: CA-HLSUS-2018-CA-001101

PATIENT
  Sex: 0

DRUGS (3)
  1. HALDOL [Suspect]
     Active Substance: HALOPERIDOL
  2. CLOZAPINE. [Suspect]
     Active Substance: CLOZAPINE
  3. ABILIFY MAINTENA [Suspect]
     Active Substance: ARIPIPRAZOLE

REACTIONS (1)
  - Psychotic symptom [Unknown]
